FAERS Safety Report 6453231-3 (Version None)
Quarter: 2009Q4

REPORT INFORMATION
  Report Type: 
  Country: None (occurrence: None)
  Receive Date: 20091123
  Receipt Date: 20091123
  Transmission Date: 20100525
  Serious: Yes (Life-Threatening, Hospitalization)
  Sender: FDA-Public Use
  Company Number: None

PATIENT
  Age: 45 Year
  Sex: Female
  Weight: 85.7298 kg

DRUGS (1)
  1. VIMPAT [Suspect]
     Indication: EPILEPSY
     Dosage: 2 TABLETS 1 IN AM + 1 IN PM PO
     Route: 048
     Dates: start: 20091111, end: 20091113

REACTIONS (3)
  - CONVULSION [None]
  - DYSPNOEA [None]
  - RASH [None]
